FAERS Safety Report 16711253 (Version 1)
Quarter: 2019Q4

REPORT INFORMATION
  Report Type: Spontaneous
  Country: US (occurrence: US)
  Receive Date: 20190816
  Receipt Date: 20190816
  Transmission Date: 20200122
  Serious: Yes (Hospitalization, Other)
  Sender: FDA-Public Use
  Company Number: None

PATIENT
  Age: 65 Year
  Sex: Male
  Weight: 138 kg

DRUGS (16)
  1. XELJANZ [Suspect]
     Active Substance: TOFACITINIB CITRATE
     Indication: RHEUMATOID ARTHRITIS
     Route: 048
     Dates: start: 20130903, end: 20170505
  2. MICRO-K [Concomitant]
     Active Substance: POTASSIUM CHLORIDE
  3. VITAMIN D [Concomitant]
     Active Substance: VITAMIN D NOS
  4. EFFIENT [Concomitant]
     Active Substance: PRASUGREL HYDROCHLORIDE
  5. TOPOROL-XL [Concomitant]
  6. DOXYCYCLINE. [Concomitant]
     Active Substance: DOXYCYCLINE
  7. RAMIPIRIL [Concomitant]
     Active Substance: RAMIPRIL
  8. ASPIRIN. [Concomitant]
     Active Substance: ASPIRIN
  9. CARDURA [Concomitant]
     Active Substance: DOXAZOSIN MESYLATE
  10. COMBIVENT [Concomitant]
     Active Substance: ALBUTEROL SULFATE\IPRATROPIUM BROMIDE
  11. DULERA [Concomitant]
     Active Substance: FORMOTEROL FUMARATE DIHYDRATE\MOMETASONE FUROATE
  12. LASIX [Concomitant]
     Active Substance: FUROSEMIDE
  13. ALBUTEROL. [Concomitant]
     Active Substance: ALBUTEROL
  14. PREDNISONE. [Concomitant]
     Active Substance: PREDNISONE
  15. NITROGLYCERIN. [Concomitant]
     Active Substance: NITROGLYCERIN
  16. VITAMIN C [Concomitant]
     Active Substance: ASCORBIC ACID

REACTIONS (2)
  - Pulmonary embolism [None]
  - Deep vein thrombosis [None]

NARRATIVE: CASE EVENT DATE: 20170503
